FAERS Safety Report 7227057-7 (Version None)
Quarter: 2011Q1

REPORT INFORMATION
  Report Type: 
  Country: None (occurrence: None)
  Receive Date: 20110114
  Receipt Date: 20101117
  Transmission Date: 20110831
  Serious: Yes (Other)
  Sender: FDA-Public Use
  Company Number: PHEH2009US02558

PATIENT
  Sex: Female

DRUGS (8)
  1. GLEEVEC [Suspect]
     Indication: CHRONIC MYELOID LEUKAEMIA
     Dosage: 400 MG, UNK
     Dates: start: 20020101
  2. GLEEVEC [Suspect]
     Dosage: 800 MG, UNK
  3. GLEEVEC [Suspect]
     Dosage: 300 MG, QD
     Dates: start: 20080610
  4. POTASSIUM SUPPLEMENTS [Concomitant]
     Indication: SUPPLEMENTATION THERAPY
  5. VITAMIN D [Concomitant]
  6. VITAMIN E [Concomitant]
  7. ASCORBIC ACID [Concomitant]
  8. GLEEVEC [Suspect]
     Dosage: 600 MG, UNK
     Dates: start: 20020101

REACTIONS (6)
  - DYSGEUSIA [None]
  - LYMPHADENOPATHY [None]
  - HEART RATE INCREASED [None]
  - NON-HODGKIN'S LYMPHOMA [None]
  - WEIGHT INCREASED [None]
  - APTYALISM [None]
